FAERS Safety Report 13687118 (Version 1)
Quarter: 2017Q2

REPORT INFORMATION
  Report Type: Spontaneous
  Country: FR (occurrence: FR)
  Receive Date: 20170623
  Receipt Date: 20170623
  Transmission Date: 20170830
  Serious: Yes (Other)
  Sender: FDA-Public Use
  Company Number: FR-PFIZER INC-2017148959

PATIENT
  Age: 69 Year
  Sex: Male

DRUGS (7)
  1. SOLU-MEDROL [Suspect]
     Active Substance: METHYLPREDNISOLONE SODIUM SUCCINATE
     Indication: BRONCHOSPASM
     Dosage: 80 MG, DAILY
     Route: 042
  2. RANIPLEX [Interacting]
     Active Substance: RANITIDINE HYDROCHLORIDE
     Dosage: 400 MG, DAILY
  3. THEOLAIR [Interacting]
     Active Substance: THEOPHYLLINE ANHYDROUS
     Indication: BRONCHOSPASM
     Dosage: 10 MG/KG, DAILY
  4. THEOLAIR [Interacting]
     Active Substance: THEOPHYLLINE ANHYDROUS
     Dosage: 13 MG/KG, DAILY
  5. THEOLAIR [Interacting]
     Active Substance: THEOPHYLLINE ANHYDROUS
     Dosage: 6 MG/KG, DAILY
  6. RANIPLEX [Interacting]
     Active Substance: RANITIDINE HYDROCHLORIDE
     Indication: BRONCHOSPASM
     Dosage: 400 MG, DAILY
  7. RANIPLEX [Interacting]
     Active Substance: RANITIDINE HYDROCHLORIDE
     Dosage: 800 MG, DAILY (HIGH-DOSE)

REACTIONS (5)
  - Seizure [Unknown]
  - Insomnia [Unknown]
  - Drug interaction [Unknown]
  - Toxicity to various agents [Recovering/Resolving]
  - Agitation [Unknown]
